FAERS Safety Report 11204951 (Version 1)
Quarter: 2015Q2

REPORT INFORMATION
  Report Type: Spontaneous
  Country: US (occurrence: None)
  Receive Date: 20150618
  Receipt Date: 20150618
  Transmission Date: 20150821
  Serious: No
  Sender: FDA-Public Use
  Company Number: None

PATIENT
  Sex: Female

DRUGS (15)
  1. ALCOHOL PREP [Concomitant]
     Active Substance: ISOPROPYL ALCOHOL
  2. METFORMIN [Concomitant]
     Active Substance: METFORMIN HYDROCHLORIDE
  3. AP-SPANISH NEW PAT [Concomitant]
  4. APOKYN [Suspect]
     Active Substance: APOMORPHINE HYDROCHLORIDE
     Indication: PARKINSON^S DISEASE
     Route: 058
     Dates: start: 20150227
  5. PEN-NEEDLE [Concomitant]
  6. JANUVIA [Concomitant]
     Active Substance: SITAGLIPTIN PHOSPHATE
  7. HYDROCHLORO [Concomitant]
  8. APOKYN PEN PAK [Concomitant]
  9. PRAMPEXOLE [Concomitant]
  10. LISINOPRIL. [Concomitant]
     Active Substance: LISINOPRIL
  11. ASPIRIN LOW TAB [Concomitant]
  12. FREESTYLE KIT SYS [Concomitant]
  13. GABAPENTIN. [Concomitant]
     Active Substance: GABAPENTIN
  14. CARBLEVO [Concomitant]
  15. TRIMETHOBENZ [Concomitant]

REACTIONS (3)
  - Vomiting [None]
  - Diarrhoea [None]
  - Pruritus [None]
